FAERS Safety Report 10010592 (Version 1)
Quarter: 2014Q1

REPORT INFORMATION
  Report Type: Spontaneous
  Country: US (occurrence: None)
  Receive Date: 20140312
  Receipt Date: 20140312
  Transmission Date: 20141002
  Serious: Yes (Hospitalization)
  Sender: FDA-Public Use
  Company Number: None

PATIENT
  Age: 61 Year
  Sex: Male
  Weight: 115 kg

DRUGS (3)
  1. VANCOMYCIN [Suspect]
     Indication: SOFT TISSUE INFECTION
     Dosage: 2500 MG IV ONCE THEN 2000 MG Q12HRSX3 DOSES,IV.
     Route: 042
     Dates: start: 20140211, end: 20140212
  2. LISINOPRIL [Concomitant]
  3. METFORMIN [Concomitant]

REACTIONS (1)
  - Renal failure acute [None]
